FAERS Safety Report 21247475 (Version 1)
Quarter: 2022Q3

REPORT INFORMATION
  Report Type: Spontaneous
  Country: US (occurrence: None)
  Receive Date: 20220823
  Receipt Date: 20220823
  Transmission Date: 20221026
  Serious: Yes (Hospitalization)
  Sender: FDA-Public Use
  Company Number: None

PATIENT
  Age: 70 Year
  Sex: Female
  Weight: 119.3 kg

DRUGS (3)
  1. TAXOL [Suspect]
     Active Substance: PACLITAXEL
     Dates: end: 20220816
  2. PERTUZUMAB [Suspect]
     Active Substance: PERTUZUMAB
     Dates: end: 20220816
  3. TRASTUZUMAB [Suspect]
     Active Substance: TRASTUZUMAB
     Dates: end: 20220816

REACTIONS (4)
  - Dizziness [None]
  - Dizziness [None]
  - Haematochezia [None]
  - Full blood count abnormal [None]

NARRATIVE: CASE EVENT DATE: 20220819
